FAERS Safety Report 9357968 (Version 3)
Quarter: 2025Q1

REPORT INFORMATION
  Report Type: Spontaneous
  Country: FR (occurrence: FR)
  Receive Date: 20130620
  Receipt Date: 20250319
  Transmission Date: 20250409
  Serious: Yes (Other)
  Sender: PFIZER
  Company Number: FR-PFIZER INC-2013180212

PATIENT
  Age: 62 Year
  Sex: Female

DRUGS (14)
  1. LANSOPRAZOLE [Interacting]
     Active Substance: LANSOPRAZOLE
     Route: 048
  2. TAHOR [Interacting]
     Active Substance: ATORVASTATIN CALCIUM
     Route: 048
  3. SERETIDE [Interacting]
     Active Substance: FLUTICASONE PROPIONATE\SALMETEROL XINAFOATE
     Route: 055
     Dates: start: 2008, end: 20130423
  4. ONGLYZA [Interacting]
     Active Substance: SAXAGLIPTIN HYDROCHLORIDE
     Dosage: 5 MG, 1X/DAY
     Route: 048
     Dates: start: 201301, end: 20130423
  5. VERAPAMIL HYDROCHLORIDE [Interacting]
     Active Substance: VERAPAMIL HYDROCHLORIDE
     Route: 048
  6. PLAVIX [Interacting]
     Active Substance: CLOPIDOGREL BISULFATE
     Dosage: 75 MG, 1X/DAY
     Route: 048
  7. SPIRIVA [Interacting]
     Active Substance: TIOTROPIUM BROMIDE MONOHYDRATE
     Route: 055
  8. SINGULAIR [Interacting]
     Active Substance: MONTELUKAST SODIUM
     Route: 048
  9. INNOVAIR [Concomitant]
     Active Substance: BECLOMETHASONE DIPROPIONATE\FORMOTEROL
     Route: 055
     Dates: start: 20130423
  10. HYDROCHLOROTHIAZIDE\IRBESARTAN [Concomitant]
     Active Substance: HYDROCHLOROTHIAZIDE\IRBESARTAN
     Route: 048
  11. FUROSEMIDE [Concomitant]
     Active Substance: FUROSEMIDE
     Route: 048
  12. CORVASAL [Concomitant]
     Route: 048
  13. METFORMIN HYDROCHLORIDE [Concomitant]
     Active Substance: METFORMIN HYDROCHLORIDE
     Route: 048
  14. ALBUTEROL [Concomitant]
     Active Substance: ALBUTEROL
     Route: 055

REACTIONS (7)
  - Drug interaction [Recovered/Resolved]
  - Cushing^s syndrome [Unknown]
  - Infection [Unknown]
  - Pneumonia [Unknown]
  - Hypogammaglobulinaemia [Recovered/Resolved]
  - Hypoglobulinaemia [Unknown]
  - Lung disorder [Unknown]

NARRATIVE: CASE EVENT DATE: 20080101
